FAERS Safety Report 7307849-6 (Version None)
Quarter: 2011Q1

REPORT INFORMATION
  Report Type: 
  Country: None (occurrence: None)
  Receive Date: 20110223
  Receipt Date: 20110218
  Transmission Date: 20110831
  Serious: Yes (Death, Other)
  Sender: FDA-Public Use
  Company Number: GB-NOVOPROD-323595

PATIENT
  Sex: Male
  Weight: 123 kg

DRUGS (4)
  1. DIAMICRON [Concomitant]
     Dosage: REDUCED TO HALF DOSE
  2. DIAMICRON [Concomitant]
     Indication: DIABETES MELLITUS
     Dosage: UNKNOWN
  3. VICTOZA [Suspect]
     Indication: DIABETES MELLITUS
     Dosage: 1.2 MG, QD
     Dates: start: 20090901
  4. VICTOZA [Suspect]
     Dosage: 1.8 MG, QD
     Dates: start: 20091101

REACTIONS (5)
  - CARDIAC FAILURE ACUTE [None]
  - MALAISE [None]
  - VIRAL INFECTION [None]
  - UPPER RESPIRATORY TRACT INFECTION [None]
  - LYMPHOMA [None]
